FAERS Safety Report 5843155-4 (Version None)
Quarter: 2008Q3

REPORT INFORMATION
  Report Type: 
  Country: None (occurrence: None)
  Receive Date: 20080813
  Receipt Date: 20080730
  Transmission Date: 20090109
  Serious: Yes (Other)
  Sender: FDA-Public Use
  Company Number: PHHY2008FR16392

PATIENT
  Sex: Female

DRUGS (4)
  1. AREDIA [Suspect]
     Dosage: 1 MONTHLY DOSE
     Route: 042
     Dates: start: 20041201, end: 20080319
  2. TAXOL [Concomitant]
     Dosage: WEEKLY
     Dates: start: 20080227
  3. FAMORUBICIN [Concomitant]
  4. SOLU-MEDROL [Concomitant]
     Dosage: 4 MG
     Route: 042
     Dates: end: 20080611

REACTIONS (3)
  - JAW OPERATION [None]
  - OSTEONECROSIS [None]
  - TOOTH DISORDER [None]
